FAERS Safety Report 5738787-8 (Version None)
Quarter: 2008Q2

REPORT INFORMATION
  Report Type: 
  Country: None (occurrence: None)
  Receive Date: 20080515
  Receipt Date: 20080229
  Transmission Date: 20081010
  Serious: No
  Sender: FDA-Public Use
  Company Number: A0712749A

PATIENT
  Age: 62 Year
  Sex: Male

DRUGS (2)
  1. VERAMYST [Suspect]
     Dosage: 110MCG PER DAY
     Route: 045
     Dates: start: 20071201
  2. SIMVASTATIN [Concomitant]

REACTIONS (1)
  - DRUG SCREEN POSITIVE [None]
